FAERS Safety Report 5509849-5 (Version None)
Quarter: 2007Q4

REPORT INFORMATION
  Report Type: 
  Country: None (occurrence: None)
  Receive Date: 20071030
  Receipt Date: 20061012
  Transmission Date: 20080405
  Serious: Yes (Hospitalization, Other)
  Sender: FDA-Public Use
  Company Number: HQWYE046113OCT06

PATIENT
  Sex: Female

DRUGS (1)
  1. PREMARIN [Suspect]
     Dosage: 0.625MG AT AN UNKNOWN FREQUENCY, ORAL
     Route: 048
     Dates: start: 19950101

REACTIONS (2)
  - ALOPECIA [None]
  - OVARIAN CANCER [None]
